FAERS Safety Report 4311130-7 (Version None)
Quarter: 2004Q1

REPORT INFORMATION
  Report Type: 
  Country: None (occurrence: None)
  Receive Date: 20040302
  Receipt Date: 20040218
  Transmission Date: 20041129
  Serious: Yes (Hospitalization, Other)
  Sender: FDA-Public Use
  Company Number: 2004011149

PATIENT
  Age: 56 Year
  Sex: Male

DRUGS (11)
  1. NEURONTIN [Suspect]
     Indication: ILL-DEFINED DISORDER
     Dosage: 2400 MG ORAL
     Route: 048
  2. LORAZEPAM [Suspect]
     Indication: ILL-DEFINED DISORDER
     Dosage: 2.5 MG ORAL
     Route: 048
     Dates: end: 20031221
  3. ALPRAZOLAM [Suspect]
     Indication: ILL-DEFINED DISORDER
     Dosage: 0.5 MG ORAL
     Dates: end: 20031221
  4. CLONAZEPAM [Suspect]
     Indication: ILL-DEFINED DISORDER
     Dosage: ORAL
     Route: 048
  5. BUFLOMEDIL (BUFLOMEDIL) [Concomitant]
  6. PERINDOPRIL (PERINDOPRIL) [Concomitant]
  7. LACTULOSE [Suspect]
  8. INSULIN HUMAN (INSULIN HUMAN) [Concomitant]
  9. SALMETEROL (SALMETEROL) [Concomitant]
  10. BECLOMETHASONE DIPROPIONATE [Concomitant]
  11. SALBUTAMOL (SALBUTAMOL) [Concomitant]

REACTIONS (6)
  - ASTHENIA [None]
  - DRUG INTERACTION [None]
  - ENDOCARDITIS [None]
  - MEDICATION ERROR [None]
  - OXYGEN SATURATION DECREASED [None]
  - SOMNOLENCE [None]
